FAERS Safety Report 5518761-7 (Version None)
Quarter: 2007Q4

REPORT INFORMATION
  Report Type: 
  Country: None (occurrence: None)
  Receive Date: 20071115
  Receipt Date: 20071107
  Transmission Date: 20080405
  Serious: Yes (Hospitalization, Other)
  Sender: FDA-Public Use
  Company Number: US-ABBOTT-07P-163-0423783-00

PATIENT
  Sex: Male
  Weight: 34 kg

DRUGS (5)
  1. DEPAKOTE ER 250MG TABLETS [Suspect]
     Indication: AFFECTIVE DISORDER
     Route: 048
     Dates: start: 20070426
  2. DEPAKOTE ER 250MG TABLETS [Suspect]
     Route: 048
  3. RESPIRDAL [Concomitant]
     Indication: DRUG USE FOR UNKNOWN INDICATION
     Route: 048
  4. HALOPERIDOL [Concomitant]
     Indication: DRUG USE FOR UNKNOWN INDICATION
  5. LORAZEPAM [Concomitant]
     Indication: DRUG USE FOR UNKNOWN INDICATION

REACTIONS (8)
  - AGGRESSION [None]
  - DYSTONIA [None]
  - ELECTROENCEPHALOGRAM ABNORMAL [None]
  - HOMICIDAL IDEATION [None]
  - HYPOGLYCAEMIA [None]
  - PETIT MAL EPILEPSY [None]
  - STARING [None]
  - SUICIDAL IDEATION [None]
